FAERS Safety Report 5329693-1 (Version None)
Quarter: 2007Q2

REPORT INFORMATION
  Report Type: 
  Country: None (occurrence: None)
  Receive Date: 20070515
  Receipt Date: 20070510
  Transmission Date: 20071010
  Serious: Yes (Life-Threatening)
  Sender: FDA-Public Use
  Company Number: 2006S1000253

PATIENT
  Age: 16 Day
  Sex: Female

DRUGS (3)
  1. NITRIC OXIDE [Suspect]
     Indication: LUNG DISORDER
     Dosage: 5 PPM; INH
     Route: 055
     Dates: start: 20061126
  2. NITRIC OXIDE [Suspect]
     Indication: PROPHYLAXIS
     Dosage: 5 PPM; INH
     Route: 055
     Dates: start: 20061126
  3. VANCOMYCIN [Concomitant]

REACTIONS (2)
  - CARDIAC FAILURE [None]
  - PATENT DUCTUS ARTERIOSUS [None]
